FAERS Safety Report 9705660 (Version 1)
Quarter: 2013Q4

REPORT INFORMATION
  Report Type: Report from Study
  Country: US (occurrence: US)
  Receive Date: 20131122
  Receipt Date: 20131122
  Transmission Date: 20140711
  Serious: Yes (Hospitalization)
  Sender: FDA-Public Use
  Company Number: US-TAKEDA-2013TUS002453

PATIENT
  Sex: 0

DRUGS (4)
  1. COLCHICINE [Suspect]
     Indication: GOUT
     Dosage: 0.6 MG, QD
     Route: 048
     Dates: start: 20120920, end: 20130312
  2. COLCHICINE [Suspect]
     Dosage: UNK
     Dates: start: 20130317
  3. ALLOPURINOL [Suspect]
     Indication: GOUT
     Dosage: 300 MG, QD
     Route: 048
     Dates: start: 20120920
  4. ALEVE [Concomitant]

REACTIONS (1)
  - Cholecystitis acute [Recovered/Resolved]
